FAERS Safety Report 16005636 (Version 1)
Quarter: 2019Q1

REPORT INFORMATION
  Report Type: Spontaneous
  Country: SE (occurrence: SE)
  Receive Date: 20190226
  Receipt Date: 20190226
  Transmission Date: 20190418
  Serious: Yes (Other)
  Sender: FDA-Public Use
  Company Number: SE-TEVA-2019-SE-1015194

PATIENT
  Age: 69 Year
  Sex: Female

DRUGS (1)
  1. ANASTROZOLE TEVA 1 MG FILMDRAGERAD TABLETT [Suspect]
     Active Substance: ANASTROZOLE
     Indication: BREAST CANCER
     Dosage: 1 MILLIGRAM DAILY; 1 MG 1X1?TOTAL 35 TABLETS
     Route: 048
     Dates: start: 20181025, end: 20181129

REACTIONS (4)
  - Feeling cold [Recovered/Resolved]
  - Product substitution issue [Recovered/Resolved]
  - Arthralgia [Recovered/Resolved]
  - Alopecia [Recovered/Resolved]

NARRATIVE: CASE EVENT DATE: 20181025
